FAERS Safety Report 24448256 (Version 9)
Quarter: 2025Q4

REPORT INFORMATION
  Report Type: Report from Study
  Country: US (occurrence: None)
  Receive Date: 20241017
  Receipt Date: 20251204
  Transmission Date: 20260117
  Serious: Yes (Hospitalization, Other)
  Sender: UCB
  Company Number: US-UCBSA-2024052828

PATIENT
  Age: 19 Year
  Weight: 54 kg

DRUGS (24)
  1. FENFLURAMINE HYDROCHLORIDE [Suspect]
     Active Substance: FENFLURAMINE HYDROCHLORIDE
     Indication: Lennox-Gastaut syndrome
     Dosage: UNK
  2. FENFLURAMINE HYDROCHLORIDE [Suspect]
     Active Substance: FENFLURAMINE HYDROCHLORIDE
     Indication: Seizure
     Dosage: 6 MILLILITER, 2X/DAY (BID)
  3. FENFLURAMINE HYDROCHLORIDE [Suspect]
     Active Substance: FENFLURAMINE HYDROCHLORIDE
     Dosage: 26.4 MILLIGRAM, ONCE DAILY (QD)
  4. FENFLURAMINE HYDROCHLORIDE [Suspect]
     Active Substance: FENFLURAMINE HYDROCHLORIDE
     Dosage: 13.2 MILLIGRAM, 2X/DAY (BID)
  5. LACOSAMIDE [Suspect]
     Active Substance: LACOSAMIDE
     Indication: Product used for unknown indication
     Dosage: TAKE 7ML IN AM, 7ML AT NOON AND 5ML IN PM
  6. LACOSAMIDE [Suspect]
     Active Substance: LACOSAMIDE
     Dosage: 70 MILLIGRAM, 2X/DAY (BID)
  7. LACOSAMIDE [Suspect]
     Active Substance: LACOSAMIDE
     Dosage: 2.8 MG/KG/DAY
  8. RUFINAMIDE [Concomitant]
     Active Substance: RUFINAMIDE
     Indication: Epilepsy
     Dosage: 40MG/ML, TAKE 12ML IN AM, 12ML AT NOON, 12ML IN PM
  9. RUFINAMIDE [Concomitant]
     Active Substance: RUFINAMIDE
     Dosage: 12 MILLILITER, VIA GTUBE
  10. ALBUTEROL [Concomitant]
     Active Substance: ALBUTEROL
     Indication: Product used for unknown indication
     Dosage: UNK
  11. FAMOTIDINE [Concomitant]
     Active Substance: FAMOTIDINE
     Indication: Product used for unknown indication
  12. FLUTICASONE [Concomitant]
     Active Substance: FLUTICASONE
     Indication: Rhinitis
     Dosage: UNK
  13. NYSTATIN [Concomitant]
     Active Substance: NYSTATIN
     Indication: Rash
     Dosage: APPLY 1 G TOPICALLY 2 LIMES DAILY AS NEEDED
  14. POLYETHYLENE GLYCOL [Concomitant]
     Active Substance: POLYETHYLENE GLYCOL
     Indication: Product used for unknown indication
     Dosage: 1.5 TEASPOONFUL PER G TUBE 2 TIMES DAILY.
  15. ARTANE [Concomitant]
     Active Substance: TRIHEXYPHENIDYL HYDROCHLORIDE
     Indication: Product used for unknown indication
     Dosage: 4 MILLIGRAM, 3X/DAY (TID)
  16. LANSOPRAZOLE [Concomitant]
     Active Substance: LANSOPRAZOLE
     Indication: Product used for unknown indication
     Dosage: UNK
  17. ROBAXIN [Concomitant]
     Active Substance: METHOCARBAMOL
     Indication: Product used for unknown indication
     Dosage: 500 MILLIGRAM
  18. MEDICAL FOOD [Concomitant]
     Active Substance: MEDICAL FOOD
     Indication: Product used for unknown indication
     Dosage: UNK, GTUBE USE
  19. DUOCAL [Concomitant]
     Indication: Product used for unknown indication
     Dosage: UNK, G TUBE USE
  20. ZANAFLEX [Concomitant]
     Active Substance: TIZANIDINE HYDROCHLORIDE
     Indication: Product used for unknown indication
     Dosage: 2 MILLIGRAM, ONCE DAILY (QD)
  21. ALBUTEROL SULFATE [Concomitant]
     Active Substance: ALBUTEROL SULFATE
     Indication: Wheezing
  22. ESOMEPRAZOLE [Concomitant]
     Active Substance: ESOMEPRAZOLE
     Indication: Product used for unknown indication
     Dosage: UNK, ONCE DAILY (QD)
  23. OMEPRAZOLE [Concomitant]
     Active Substance: OMEPRAZOLE
     Indication: Product used for unknown indication
     Dosage: 20 MILLIGRAM
  24. LIORESAL [Concomitant]
     Active Substance: BACLOFEN
     Indication: Product used for unknown indication
     Dosage: 10 MILLIGRAM

REACTIONS (19)
  - Mitral valve incompetence [Not Recovered/Not Resolved]
  - Seizure [Recovered/Resolved]
  - Irritability [Recovering/Resolving]
  - Anxiety [Recovering/Resolving]
  - Respiratory arrest [Unknown]
  - Tricuspid valve incompetence [Not Recovered/Not Resolved]
  - Echocardiogram abnormal [Not Recovered/Not Resolved]
  - Pain [Unknown]
  - Swelling [Unknown]
  - Gait disturbance [Unknown]
  - Asthenia [Unknown]
  - Pectus excavatum [Unknown]
  - Patient uncooperative [Unknown]
  - Musculoskeletal stiffness [Unknown]
  - Cyanosis [Unknown]
  - Disorientation [Unknown]
  - Cough [Unknown]
  - Salivary hypersecretion [Unknown]
  - Product use issue [Unknown]
